FAERS Safety Report 12269363 (Version 1)
Quarter: 2016Q2

REPORT INFORMATION
  Report Type: Report from Study
  Country: US (occurrence: US)
  Receive Date: 20160414
  Receipt Date: 20160414
  Transmission Date: 20160815
  Serious: Yes (Other)
  Sender: FDA-Public Use
  Company Number: US-JNJFOC-20160410854

PATIENT
  Sex: Female

DRUGS (2)
  1. MYRBETRIQ [Concomitant]
     Active Substance: MIRABEGRON
  2. IMBRUVICA [Suspect]
     Active Substance: IBRUTINIB
     Indication: WALDENSTROM^S MACROGLOBULINAEMIA
     Route: 048
     Dates: start: 20150805, end: 2016

REACTIONS (11)
  - Pleural effusion [Unknown]
  - Laboratory test abnormal [Unknown]
  - Nausea [Unknown]
  - White blood cell count increased [Unknown]
  - White blood cell count decreased [Unknown]
  - Red blood cell count increased [Unknown]
  - Pericardial effusion [Unknown]
  - Red blood cell count decreased [Unknown]
  - Decreased appetite [Unknown]
  - Pneumothorax [Unknown]
  - Weight decreased [Unknown]
